FAERS Safety Report 7390565-2 (Version None)
Quarter: 2011Q2

REPORT INFORMATION
  Report Type: 
  Country: None (occurrence: None)
  Receive Date: 20110404
  Receipt Date: 20110323
  Transmission Date: 20111010
  Serious: Yes (Hospitalization)
  Sender: FDA-Public Use
  Company Number: DE-BIOGENIDEC-2011BI000720

PATIENT
  Age: 37 Year
  Sex: Female
  Weight: 60 kg

DRUGS (3)
  1. ANTIDEPRESSANTS [Concomitant]
     Indication: BIPOLAR DISORDER
  2. TYSABRI [Suspect]
     Route: 042
     Dates: start: 20090601, end: 20100801
  3. TYSABRI [Suspect]
     Indication: RELAPSING-REMITTING MULTIPLE SCLEROSIS
     Route: 042
     Dates: start: 20070301, end: 20090201

REACTIONS (4)
  - BIPOLAR DISORDER [None]
  - STUPOR [None]
  - MULTIPLE SCLEROSIS RELAPSE [None]
  - PSYCHOTIC DISORDER [None]
